FAERS Safety Report 18469567 (Version 2)
Quarter: 2021Q1

REPORT INFORMATION
  Report Type: Spontaneous
  Country: None (occurrence: US)
  Receive Date: 20201105
  Receipt Date: 20210126
  Transmission Date: 20210419
  Serious: No
  Sender: FDA-Public Use
  Company Number: US-VIFOR (INTERNATIONAL) INC.-VIT-2020-10552

PATIENT
  Age: 66 Year
  Sex: Female

DRUGS (6)
  1. ALBUTEROL. [Concomitant]
     Active Substance: ALBUTEROL
  2. VELTASSA [Suspect]
     Active Substance: PATIROMER
     Indication: HYPERKALAEMIA
     Route: 048
  3. VELTASSA [Suspect]
     Active Substance: PATIROMER
     Route: 048
  4. SODIUM BICARBONATE. [Concomitant]
     Active Substance: SODIUM BICARBONATE
     Route: 042
  5. FUROSEMIDE. [Concomitant]
     Active Substance: FUROSEMIDE
     Route: 042
  6. INSULIN WITH D50 [Concomitant]

REACTIONS (1)
  - Drug ineffective [Unknown]
